FAERS Safety Report 6372361-8 (Version None)
Quarter: 2009Q3

REPORT INFORMATION
  Report Type: 
  Country: None (occurrence: None)
  Receive Date: 20090924
  Receipt Date: 20081007
  Transmission Date: 20100115
  Serious: No
  Sender: FDA-Public Use
  Company Number: US-ASTRAZENECA-2008UW21839

PATIENT
  Age: 50 Year
  Sex: Female
  Weight: 57.2 kg

DRUGS (4)
  1. SEROQUEL [Suspect]
     Indication: BIPOLAR I DISORDER
     Route: 048
  2. PROZAC [Concomitant]
  3. XANAX [Concomitant]
  4. OXYCODONE [Concomitant]

REACTIONS (6)
  - ABNORMAL BEHAVIOUR [None]
  - ALCOHOLISM [None]
  - ANXIETY [None]
  - FEELING ABNORMAL [None]
  - INCREASED APPETITE [None]
  - INTERMITTENT EXPLOSIVE DISORDER [None]
